FAERS Safety Report 7318938-4 (Version None)
Quarter: 2011Q1

REPORT INFORMATION
  Report Type: 
  Country: None (occurrence: None)
  Receive Date: 20110228
  Receipt Date: 20110218
  Transmission Date: 20110831
  Serious: Yes (Other)
  Sender: FDA-Public Use
  Company Number: US-NOVOPROD-323608

PATIENT
  Sex: Female

DRUGS (1)
  1. VICTOZA [Suspect]
     Indication: TYPE 2 DIABETES MELLITUS
     Dosage: 0.6 MG, QD
     Route: 058
     Dates: start: 20110212, end: 20110217

REACTIONS (7)
  - DECREASED APPETITE [None]
  - ERUCTATION [None]
  - DEHYDRATION [None]
  - INJECTION SITE PAIN [None]
  - VOMITING [None]
  - DIARRHOEA [None]
  - NAUSEA [None]
